FAERS Safety Report 8477109 (Version 4)
Quarter: 2013Q4

REPORT INFORMATION
  Report Type: Spontaneous
  Country: GB (occurrence: GB)
  Receive Date: 20120326
  Receipt Date: 20131106
  Transmission Date: 20140711
  Serious: Yes (Disabling)
  Sender: FDA-Public Use
  Company Number: GB-009507513-1203GBR00081

PATIENT
  Age: 50 Year
  Sex: Female

DRUGS (2)
  1. JANUVIA [Suspect]
     Indication: DIABETES MELLITUS
     Dosage: 100 MG, QD
     Route: 048
     Dates: start: 2011, end: 2011
  2. METFORMIN [Concomitant]

REACTIONS (2)
  - Rheumatoid arthritis [Recovered/Resolved]
  - Vasculitis [Recovered/Resolved]
